FAERS Safety Report 8003138-5 (Version None)
Quarter: 2011Q4

REPORT INFORMATION
  Report Type: 
  Country: None (occurrence: None)
  Receive Date: 20111222
  Receipt Date: 20111212
  Transmission Date: 20120403
  Serious: Yes (Other)
  Sender: FDA-Public Use
  Company Number: PHHY2011BR42626

PATIENT
  Sex: Female
  Weight: 59 kg

DRUGS (2)
  1. DIOVAN [Suspect]
     Indication: HYPERTENSION
     Dosage: 1 DF (160 MG), QD (MORNING)
     Route: 048
     Dates: start: 20090101
  2. MARACUGINA [Concomitant]
     Indication: NERVOUSNESS
     Dosage: 1 DF (UNK), DAILY
     Route: 048

REACTIONS (7)
  - HYPERTENSION [None]
  - OSTEOPOROSIS [None]
  - LEUKAEMIA [None]
  - BACK PAIN [None]
  - FEELING ABNORMAL [None]
  - MEMORY IMPAIRMENT [None]
  - FATIGUE [None]
